FAERS Safety Report 6111488-2 (Version None)
Quarter: 2009Q1

REPORT INFORMATION
  Report Type: 
  Country: None (occurrence: None)
  Receive Date: 20090309
  Receipt Date: 20090227
  Transmission Date: 20090719
  Serious: Yes (Life-Threatening, Disabling)
  Sender: FDA-Public Use
  Company Number: 2008-178834-NL

PATIENT
  Age: 26 Year
  Sex: Female

DRUGS (3)
  1. NUVARING [Suspect]
     Indication: CONTRACEPTION
     Dosage: VAGINA
     Route: 067
     Dates: start: 20061022, end: 20070205
  2. SALBUTAMOL SULFATE [Concomitant]
  3. FLUTICASONE PROPIONATE [Concomitant]

REACTIONS (15)
  - AGGRESSION [None]
  - ANOREXIA [None]
  - ANXIETY [None]
  - CARDIAC DISORDER [None]
  - DIZZINESS [None]
  - FLUSHING [None]
  - HYPERHIDROSIS [None]
  - IMPAIRED WORK ABILITY [None]
  - INSOMNIA [None]
  - PALPITATIONS [None]
  - PANIC ATTACK [None]
  - PANIC REACTION [None]
  - SMEAR CERVIX ABNORMAL [None]
  - SUICIDAL IDEATION [None]
  - TREMOR [None]
